FAERS Safety Report 17329164 (Version 1)
Quarter: 2020Q1

REPORT INFORMATION
  Report Type: Spontaneous
  Country: US (occurrence: US)
  Receive Date: 20200110
  Receipt Date: 20200110
  Transmission Date: 20200409
  Serious: Yes (Hospitalization)
  Sender: FDA-Public Use
  Company Number: None

PATIENT
  Age: 73 Year
  Sex: Male

DRUGS (11)
  1. MODAFINIL. [Concomitant]
     Active Substance: MODAFINIL
  2. TAMSULOSIN [Concomitant]
     Active Substance: TAMSULOSIN
  3. PREGABALIN. [Concomitant]
     Active Substance: PREGABALIN
  4. NORTRIPTYLIN [Concomitant]
     Active Substance: NORTRIPTYLINE
  5. TRAMADOL HCL [Concomitant]
     Active Substance: TRAMADOL HYDROCHLORIDE
  6. TRIAMT/HCTZ [Concomitant]
     Active Substance: HYDROCHLOROTHIAZIDE\TRIAMTERENE
  7. ROPINIROLE. [Concomitant]
     Active Substance: ROPINIROLE
  8. HUMIRA [Suspect]
     Active Substance: ADALIMUMAB
     Indication: CROHN^S DISEASE
     Dosage: ?          OTHER FREQUENCY:Q14DAYS;?
     Route: 058
     Dates: start: 20191102
  9. FENOFIBRATE. [Concomitant]
     Active Substance: FENOFIBRATE
  10. PROPRANOLOL [Concomitant]
     Active Substance: PROPRANOLOL HYDROCHLORIDE
  11. MAG OXIDE [Concomitant]
     Active Substance: MAGNESIUM OXIDE

REACTIONS (1)
  - Gallbladder operation [None]

NARRATIVE: CASE EVENT DATE: 202001
